FAERS Safety Report 16017119 (Version 2)
Quarter: 2019Q2

REPORT INFORMATION
  Report Type: Spontaneous
  Country: US (occurrence: US)
  Receive Date: 20190228
  Receipt Date: 20190403
  Transmission Date: 20190711
  Serious: No
  Sender: FDA-Public Use
  Company Number: US-ASTRAZENECA-2019SE19857

PATIENT
  Sex: Female

DRUGS (2)
  1. BYETTA [Suspect]
     Active Substance: EXENATIDE
     Route: 065
  2. BYDUREON BCISE [Suspect]
     Active Substance: EXENATIDE
     Route: 065

REACTIONS (7)
  - Device defective [Unknown]
  - Device leakage [Unknown]
  - Injury [Unknown]
  - Blood glucose abnormal [Unknown]
  - Weight decreased [Unknown]
  - Product dose omission [Unknown]
  - Device breakage [Unknown]
